FAERS Safety Report 4362223-X (Version None)
Quarter: 2004Q2

REPORT INFORMATION
  Report Type: 
  Country: None (occurrence: None)
  Receive Date: 20040517
  Receipt Date: 20040506
  Transmission Date: 20050107
  Serious: Yes (Hospitalization)
  Sender: FDA-Public Use
  Company Number: 2004031121

PATIENT
  Age: 72 Year
  Sex: Male

DRUGS (4)
  1. BENADRYL [Suspect]
     Indication: PRURITUS
     Dosage: 1 TAB NIGHTLY, ORAL
     Route: 048
     Dates: start: 19600101
  2. ACETYLSALICYLIC ACID SRT [Suspect]
     Dosage: ORAL
     Route: 048
  3. INDOMETHACIN [Suspect]
     Dosage: ORAL
     Route: 048
  4. VALDECOXIB [Concomitant]

REACTIONS (4)
  - ARTHRITIS [None]
  - CHROMATURIA [None]
  - GASTRIC DISORDER [None]
  - RECTAL HAEMORRHAGE [None]
